FAERS Safety Report 21273637 (Version 1)
Quarter: 2022Q3

REPORT INFORMATION
  Report Type: Spontaneous
  Country: US (occurrence: US)
  Receive Date: 20220831
  Receipt Date: 20220831
  Transmission Date: 20221026
  Serious: No
  Sender: FDA-Public Use
  Company Number: US-PFIZER INC-PV202200005517

PATIENT
  Age: 63 Year
  Sex: Female

DRUGS (3)
  1. IBRANCE [Suspect]
     Active Substance: PALBOCICLIB
     Indication: Breast cancer metastatic
     Dosage: 125 MG, CYCLIC (125MG TABLETS FOR 21 DAYS ON WITH 7 DAYS OFF)
     Route: 048
     Dates: start: 20220407
  2. IBRANCE [Suspect]
     Active Substance: PALBOCICLIB
     Indication: Breast cancer
  3. ARIMIDEX [Concomitant]
     Active Substance: ANASTROZOLE
     Dosage: UNK

REACTIONS (1)
  - Platelet count decreased [Unknown]
